FAERS Safety Report 8910010 (Version 1)
Quarter: 2012Q4

REPORT INFORMATION
  Report Type: 
  Country: US (occurrence: US)
  Receive Date: 20121115
  Receipt Date: 20121115
  Transmission Date: 20130627
  Serious: No
  Sender: FDA-Public Use
  Company Number: US-PFIZER INC-2012285560

PATIENT
  Age: 48 Year
  Sex: Male
  Weight: 86.17 kg

DRUGS (2)
  1. LIPITOR [Suspect]
     Indication: BLOOD CHOLESTEROL ABNORMAL
     Dosage: 20 mg, daily
     Dates: end: 201205
  2. TRILIPIX [Suspect]
     Indication: TRIGLYCERIDES HIGH
     Dosage: 135 mg, daily
     Dates: end: 201205

REACTIONS (4)
  - Sluggishness [Unknown]
  - Fatigue [Unknown]
  - Anxiety [Unknown]
  - Feeling abnormal [Unknown]
